FAERS Safety Report 22629574 (Version 1)
Quarter: 2023Q2

REPORT INFORMATION
  Report Type: Spontaneous
  Country: US (occurrence: US)
  Receive Date: 20230622
  Receipt Date: 20230622
  Transmission Date: 20230722
  Serious: Yes (Other)
  Sender: FDA-Public Use
  Company Number: US-SA-SAC20230620000091

PATIENT
  Age: 50 Year
  Sex: Female
  Weight: 111.1 kg

DRUGS (18)
  1. DUPIXENT [Suspect]
     Active Substance: DUPILUMAB
     Indication: Dermatitis
     Dosage: 300 MG, 1X
     Route: 058
     Dates: start: 20230426, end: 20230426
  2. DUPIXENT [Suspect]
     Active Substance: DUPILUMAB
     Dosage: 300 MG, QOW
     Dates: start: 20230602
  3. AMOXICILLIN [Concomitant]
     Active Substance: AMOXICILLIN
     Dosage: 875 MG
     Route: 048
     Dates: start: 20230426, end: 20230602
  4. AZITHROMYCIN [Concomitant]
     Active Substance: AZITHROMYCIN
     Dosage: 250 MG
     Route: 048
     Dates: start: 20230426, end: 20230602
  5. CYCLOBENZAPRINE HYDROCHLORIDE [Concomitant]
     Active Substance: CYCLOBENZAPRINE HYDROCHLORIDE
     Dosage: 10 MG
     Route: 048
     Dates: start: 20230426, end: 20230602
  6. ATROPINE\DIPHENOXYLATE [Concomitant]
     Active Substance: ATROPINE\DIPHENOXYLATE
     Dosage: UNK 2.5-0.025 MG
     Route: 048
     Dates: start: 20230426, end: 20230602
  7. ESZOPICLONE [Concomitant]
     Active Substance: ESZOPICLONE
     Dosage: 2 MG
     Route: 048
     Dates: start: 20230426
  8. FOLIC ACID [Concomitant]
     Active Substance: FOLIC ACID
     Dosage: 400 UG
     Route: 048
     Dates: start: 20230426
  9. GABAPENTIN [Concomitant]
     Active Substance: GABAPENTIN
     Dosage: 800 MG
     Route: 048
     Dates: start: 20230426
  10. HYDROCHLOROTHIAZIDE [Concomitant]
     Active Substance: HYDROCHLOROTHIAZIDE
     Dosage: 25 MG
     Route: 048
     Dates: start: 20230426
  11. MORPHINE SULFATE [Concomitant]
     Active Substance: MORPHINE SULFATE
     Dosage: 15 MG
     Route: 048
     Dates: start: 20230426
  12. MOUNJARO [Concomitant]
     Active Substance: TIRZEPATIDE
     Dosage: UNK (7.5- 0.5 ML) SOLUTION PEN
     Route: 058
     Dates: start: 20230426
  13. NYSTATIN [Concomitant]
     Active Substance: NYSTATIN
     Dosage: 100000 UNK
     Route: 048
     Dates: start: 20230426
  14. PREDNISONE [Concomitant]
     Active Substance: PREDNISONE
     Dosage: 10 MG
     Route: 048
     Dates: start: 20230426
  15. SYMBICORT [Concomitant]
     Active Substance: BUDESONIDE\FORMOTEROL FUMARATE DIHYDRATE
     Dosage: UNK (80-4.5) AEROSOL
     Route: 055
     Dates: start: 20230426
  16. TRINTELLIX [Concomitant]
     Active Substance: VORTIOXETINE HYDROBROMIDE
     Dosage: 5 MG
     Route: 048
     Dates: start: 20230602
  17. VITAMIN D NOS [Concomitant]
     Active Substance: VITAMIN D NOS
     Dosage: 1.25 MG
     Route: 048
     Dates: start: 20230426
  18. ZITHROMAX [Concomitant]
     Active Substance: AZITHROMYCIN DIHYDRATE
     Dosage: 250 MG
     Route: 048
     Dates: start: 20230602

REACTIONS (2)
  - Incorrect dose administered [Unknown]
  - Product use in unapproved indication [Unknown]

NARRATIVE: CASE EVENT DATE: 20230602
